FAERS Safety Report 25977119 (Version 2)
Quarter: 2025Q4

REPORT INFORMATION
  Report Type: Spontaneous
  Country: US (occurrence: US)
  Receive Date: 20251030
  Receipt Date: 20251107
  Transmission Date: 20260118
  Serious: Yes (Other)
  Sender: ROCHE
  Company Number: US-ROCHE-10000417380

PATIENT
  Age: 16 Year
  Sex: Female

DRUGS (2)
  1. XOLAIR [Suspect]
     Active Substance: OMALIZUMAB
     Indication: Anaphylactic shock
     Dosage: FREQUENCY CHANGED TO EVERY 2 WEEKS INSTEAD OF MONTHLY
     Route: 058
     Dates: start: 202501
  2. XOLAIR [Suspect]
     Active Substance: OMALIZUMAB
     Indication: Urticaria

REACTIONS (4)
  - Anaphylactic reaction [Unknown]
  - Dyspnoea [Unknown]
  - Wheezing [Unknown]
  - Off label use [Unknown]

NARRATIVE: CASE EVENT DATE: 20251006
